FAERS Safety Report 15268625 (Version 1)
Quarter: 2018Q3

REPORT INFORMATION
  Report Type: Report from Study
  Country: None (occurrence: US)
  Receive Date: 20180812
  Receipt Date: 20180812
  Transmission Date: 20181010
  Serious: Yes (Hospitalization)
  Sender: FDA-Public Use
  Company Number: US-ABBVIE-18K-163-2445490-00

PATIENT
  Sex: Female

DRUGS (1)
  1. HUMIRA [Suspect]
     Active Substance: ADALIMUMAB
     Indication: PRODUCT USED FOR UNKNOWN INDICATION
     Route: 058
     Dates: start: 201508, end: 201602

REACTIONS (11)
  - Mucosal haemorrhage [Unknown]
  - Rectal haemorrhage [Unknown]
  - Colitis ulcerative [Unknown]
  - Muscle spasms [Unknown]
  - Constipation [Unknown]
  - Haematochezia [Unknown]
  - Pyrexia [Unknown]
  - Crohn^s disease [Unknown]
  - Infrequent bowel movements [Unknown]
  - Mucosal ulceration [Unknown]
  - Drug effect delayed [Unknown]
